FAERS Safety Report 7304711-X (Version None)
Quarter: 2011Q1

REPORT INFORMATION
  Report Type: 
  Country: None (occurrence: None)
  Receive Date: 20110222
  Receipt Date: 20110215
  Transmission Date: 20110831
  Serious: No
  Sender: FDA-Public Use
  Company Number: US-PFIZER INC-2011034675

PATIENT
  Sex: Male
  Weight: 54.422 kg

DRUGS (2)
  1. ABILIFY [Concomitant]
     Dosage: 5 MG, 1X/DAY
     Route: 048
  2. GENOTROPIN [Suspect]
     Indication: HYPOPITUITARISM
     Dosage: UNK

REACTIONS (3)
  - MALAISE [None]
  - NAUSEA [None]
  - VOMITING [None]
